FAERS Safety Report 5599360-8 (Version None)
Quarter: 2008Q1

REPORT INFORMATION
  Report Type: 
  Country: None (occurrence: None)
  Receive Date: 20080117
  Receipt Date: 20080107
  Transmission Date: 20080703
  Serious: Yes (Hospitalization)
  Sender: FDA-Public Use
  Company Number: 2008-00082

PATIENT
  Age: 41 Year
  Sex: Male

DRUGS (5)
  1. CLOMIPRAMINE HYDROCHLORIDE [Suspect]
     Indication: OBSESSIVE-COMPULSIVE DISORDER
     Dosage: 50 MG, DAILY,
     Dates: start: 20050101
  2. TEPRENONE (TEPRENONE) [Concomitant]
  3. VALPROATE SODIUM [Concomitant]
  4. CARBAMAZEPINE [Concomitant]
  5. PEROSPIRONE [Concomitant]

REACTIONS (3)
  - HAEMODIALYSIS [None]
  - NEPHRITIS INTERSTITIAL [None]
  - RENAL FAILURE ACUTE [None]
